FAERS Safety Report 8791832 (Version 1)
Quarter: 2012Q4

REPORT INFORMATION
  Report Type: 
  Country: GB (occurrence: GB)
  Receive Date: 20120918
  Receipt Date: 20120918
  Transmission Date: 20130627
  Serious: Yes (Hospitalization)
  Sender: FDA-Public Use
  Company Number: GB-TEVA-357728ISR

PATIENT
  Sex: Male
  Weight: 88 kg

DRUGS (1)
  1. AMITRIPTYLINE [Suspect]
     Indication: MIGRAINE
     Route: 048

REACTIONS (2)
  - Hallucination, visual [Recovered/Resolved]
  - Encephalitis [Recovered/Resolved]
